FAERS Safety Report 6360944-0 (Version None)
Quarter: 2009Q3

REPORT INFORMATION
  Report Type: 
  Country: None (occurrence: None)
  Receive Date: 20090918
  Receipt Date: 20090915
  Transmission Date: 20100115
  Serious: Yes (Death)
  Sender: FDA-Public Use
  Company Number: US-CELGENEUS-163-21880-09081309

PATIENT
  Sex: Female

DRUGS (1)
  1. REVLIMID [Suspect]
     Route: 048
     Dates: start: 20090612, end: 20090802

REACTIONS (1)
  - DEATH [None]
